FAERS Safety Report 14648782 (Version 2)
Quarter: 2018Q2

REPORT INFORMATION
  Report Type: Spontaneous
  Country: AU (occurrence: AU)
  Receive Date: 20180316
  Receipt Date: 20180615
  Transmission Date: 20180711
  Serious: Yes (Hospitalization, Other)
  Sender: FDA-Public Use
  Company Number: AU-PFIZER INC-2018103413

PATIENT
  Age: 73 Year
  Sex: Male

DRUGS (4)
  1. XELJANZ [Suspect]
     Active Substance: TOFACITINIB CITRATE
     Indication: RHEUMATOID ARTHRITIS
     Dosage: 10 MG, 2X/DAY, 5MG OM, ON
     Dates: start: 201801, end: 201803
  2. SOLONE [Suspect]
     Active Substance: PREDNISOLONE
     Dosage: 15 UNK, UNK
  3. SOLONE [Suspect]
     Active Substance: PREDNISOLONE
     Dosage: 5 MG, UNK
  4. SOLONE [Suspect]
     Active Substance: PREDNISOLONE
     Dosage: 25 UNK, UNK
     Dates: start: 2015

REACTIONS (10)
  - Quality of life decreased [Not Recovered/Not Resolved]
  - Dizziness [Not Recovered/Not Resolved]
  - Acne [Not Recovered/Not Resolved]
  - Blister rupture [Not Recovered/Not Resolved]
  - Loss of consciousness [Not Recovered/Not Resolved]
  - Hyperhidrosis [Not Recovered/Not Resolved]
  - Overdose [Unknown]
  - Groin infection [Not Recovered/Not Resolved]
  - Abdominal distension [Not Recovered/Not Resolved]
  - Fatigue [Not Recovered/Not Resolved]

NARRATIVE: CASE EVENT DATE: 2015
